FAERS Safety Report 13898738 (Version 1)
Quarter: 2017Q3

REPORT INFORMATION
  Report Type: Spontaneous
  Country: US (occurrence: None)
  Receive Date: 20170817
  Receipt Date: 20170817
  Transmission Date: 20171127
  Serious: Yes (Hospitalization)
  Sender: FDA-Public Use
  Company Number: None

PATIENT
  Age: 70 Year
  Sex: Male
  Weight: 78.34 kg

DRUGS (2)
  1. ASPIRIN. [Suspect]
     Active Substance: ASPIRIN
     Indication: SELF-MEDICATION
     Route: 048
     Dates: start: 20170501, end: 20170620
  2. RIVAROXABAN [Suspect]
     Active Substance: RIVAROXABAN
     Indication: ATRIAL FIBRILLATION
     Route: 048
     Dates: start: 20170501, end: 20170520

REACTIONS (11)
  - Large intestine polyp [None]
  - Rectal haemorrhage [None]
  - Haemorrhoids [None]
  - Anaemia [None]
  - Orthopnoea [None]
  - Fluid overload [None]
  - Diverticulum intestinal [None]
  - Pneumonia [None]
  - Dialysis [None]
  - Acute kidney injury [None]
  - Pneumothorax [None]

NARRATIVE: CASE EVENT DATE: 20170620
